FAERS Safety Report 16255478 (Version 2)
Quarter: 2019Q2

REPORT INFORMATION
  Report Type: Spontaneous
  Country: FR (occurrence: FR)
  Receive Date: 20190430
  Receipt Date: 20190607
  Transmission Date: 20190711
  Serious: Yes (Other)
  Sender: FDA-Public Use
  Company Number: FR-MYLANLABS-2019M1039841

PATIENT
  Age: 2 Month
  Sex: Female

DRUGS (5)
  1. METFORMIN [Suspect]
     Active Substance: METFORMIN HYDROCHLORIDE
     Dosage: 300 MILLIGRAM, 60-100 MG/ KG/DAY
     Route: 065
  2. METFORMIN [Suspect]
     Active Substance: METFORMIN HYDROCHLORIDE
     Dosage: 100 MILLIGRAM, TID,300 MILLIGRAM, QD(60-100 MG/ KG/DAY)
     Route: 065
  3. METFORMIN [Suspect]
     Active Substance: METFORMIN HYDROCHLORIDE
     Indication: CARDIOMETABOLIC SYNDROME
     Dosage: 10 MILLIGRAM, TID (30 MG,QD)
     Route: 065
  4. METFORMIN [Suspect]
     Active Substance: METFORMIN HYDROCHLORIDE
     Dosage: 30 MILLIGRAM
     Route: 065
  5. METFORMIN [Suspect]
     Active Substance: METFORMIN HYDROCHLORIDE
     Dosage: 70 MILLIGRAM, TID (210 MG, QD)
     Route: 065

REACTIONS (2)
  - Hyperlactacidaemia [Unknown]
  - Product use issue [Unknown]
